FAERS Safety Report 5671144-1 (Version None)
Quarter: 2008Q1

REPORT INFORMATION
  Report Type: 
  Country: None (occurrence: None)
  Receive Date: 20080318
  Receipt Date: 20080305
  Transmission Date: 20080703
  Serious: Yes (Hospitalization)
  Sender: FDA-Public Use
  Company Number: US-ELI_LILLY_AND_COMPANY-US200802005679

PATIENT
  Age: 84 Year
  Sex: Female

DRUGS (11)
  1. FORTEO [Suspect]
     Dosage: UNK, UNK
     Dates: start: 20071201
  2. FORTEO [Suspect]
  3. FORTEO [Suspect]
  4. ZOLOFT [Concomitant]
  5. ENBREL [Concomitant]
  6. ARICEPT [Concomitant]
  7. NAMENDA [Concomitant]
  8. METHOTREXATE [Concomitant]
  9. PREDNISONE [Concomitant]
  10. ASPIRIN [Concomitant]
  11. AMBIEN [Concomitant]

REACTIONS (3)
  - ARTHRALGIA [None]
  - DEVICE BREAKAGE [None]
  - FRACTURE DELAYED UNION [None]
